FAERS Safety Report 24141614 (Version 8)
Quarter: 2025Q1

REPORT INFORMATION
  Report Type: Report from Study
  Country: CO (occurrence: CO)
  Receive Date: 20240726
  Receipt Date: 20250328
  Transmission Date: 20250409
  Serious: Yes (Other)
  Sender: TAKEDA
  Company Number: CO-TAKEDA-2024TUS050823

PATIENT
  Age: 7 Year
  Sex: Male
  Weight: 27 kg

DRUGS (1)
  1. IDURSULFASE [Suspect]
     Active Substance: IDURSULFASE
     Indication: Mucopolysaccharidosis II
     Dosage: 13.5 MILLIGRAM, 1/WEEK
     Dates: start: 20240419

REACTIONS (17)
  - Choking [Recovered/Resolved]
  - Loss of consciousness [Recovered/Resolved]
  - Dyspnoea [Recovered/Resolved]
  - Cyanosis [Recovered/Resolved]
  - Insurance issue [Unknown]
  - Product use issue [Unknown]
  - Head injury [Unknown]
  - Asthenia [Recovered/Resolved]
  - Fall [Unknown]
  - Face injury [Recovering/Resolving]
  - Treatment noncompliance [Unknown]
  - Product prescribing issue [Unknown]
  - Product dose omission issue [Unknown]
  - Product availability issue [Unknown]
  - Nasal congestion [Not Recovered/Not Resolved]
  - Diarrhoea [Not Recovered/Not Resolved]
  - Cough [Recovered/Resolved]

NARRATIVE: CASE EVENT DATE: 20240613
